FAERS Safety Report 8465435-9 (Version None)
Quarter: 2012Q2

REPORT INFORMATION
  Report Type: 
  Country: None (occurrence: None)
  Receive Date: 20120626
  Receipt Date: 20120618
  Transmission Date: 20120825
  Serious: Yes (Hospitalization, Other)
  Sender: FDA-Public Use
  Company Number: PHHY2012JP054038

PATIENT
  Sex: Female
  Weight: 55 kg

DRUGS (21)
  1. AFINITOR [Suspect]
     Dosage: 10 MG, DAILY
     Route: 048
     Dates: start: 20111215, end: 20120218
  2. MUCODYNE [Concomitant]
     Indication: METASTATIC RENAL CELL CARCINOMA
     Dosage: 1500 MG, UNK
     Route: 048
     Dates: start: 20110901
  3. FAMOTIDINE [Concomitant]
     Dosage: 20 MG, UNK
     Route: 048
     Dates: start: 20110901
  4. AFINITOR [Suspect]
     Dosage: 5 MG, DAILY
     Route: 048
     Dates: start: 20110914, end: 20111004
  5. PREDNISOLONE [Suspect]
     Dosage: 10 MG, DAILY
     Route: 048
     Dates: start: 20120125
  6. SUNITINIB MALATE [Concomitant]
     Indication: METASTATIC RENAL CELL CARCINOMA
     Dosage: UNK
     Route: 048
     Dates: start: 20110211, end: 20110816
  7. MEDICON (DEXTROMETHORPHAN HYDROBROMIDE) [Concomitant]
     Indication: METASTATIC RENAL CELL CARCINOMA
     Dosage: 90 MG, UNK
     Route: 048
  8. PYDOXAL [Concomitant]
     Indication: PROPHYLAXIS
     Dosage: 60 MG, UNK
     Route: 048
     Dates: start: 20110901, end: 20111014
  9. AFINITOR [Suspect]
     Indication: METASTATIC RENAL CELL CARCINOMA
     Dosage: 10 MG, DAILY
     Route: 048
     Dates: start: 20110901, end: 20110913
  10. AFINITOR [Suspect]
     Dosage: 10 MG, DAILY
     Route: 048
     Dates: start: 20111005, end: 20111101
  11. VITAMIN B12 [Concomitant]
     Dosage: 1500 UG, UNK
     Route: 048
     Dates: start: 20110901, end: 20111018
  12. MUCOSTA [Concomitant]
     Dosage: 300 MG, UNK
     Route: 048
     Dates: start: 20110901
  13. AFINITOR [Suspect]
     Dosage: 10 MG, DAILY
     Route: 048
     Dates: start: 20120301
  14. PREDNISOLONE [Suspect]
     Dosage: 15 MG, DAILY
     Route: 048
     Dates: start: 20120111, end: 20120124
  15. HIRUDOID [Concomitant]
     Dates: start: 20110901, end: 20110921
  16. NERISONA [Concomitant]
     Dates: start: 20110901, end: 20110921
  17. LOCOID [Concomitant]
     Dates: start: 20110922, end: 20110927
  18. AFINITOR [Suspect]
     Dosage: 10 MG, DAILY
     Route: 048
     Dates: start: 20111102, end: 20111130
  19. TRAMADOL HYDROCHLORIDE [Concomitant]
     Indication: METASTATIC RENAL CELL CARCINOMA
     Route: 048
     Dates: start: 20111215
  20. PREDNISOLONE [Suspect]
     Dosage: 20 MG, DAILY
     Route: 048
     Dates: start: 20111215, end: 20120110
  21. LOXONIN [Concomitant]
     Indication: METASTATIC RENAL CELL CARCINOMA
     Dosage: 180 MG, UNK
     Route: 048
     Dates: start: 20110901

REACTIONS (3)
  - PNEUMONIA [None]
  - METASTASES TO LUNG [None]
  - SEPTIC SHOCK [None]
